FAERS Safety Report 5779391-5 (Version None)
Quarter: 2008Q2

REPORT INFORMATION
  Report Type: 
  Country: None (occurrence: None)
  Receive Date: 20080619
  Receipt Date: 20070913
  Transmission Date: 20081010
  Serious: No
  Sender: FDA-Public Use
  Company Number: US-ASTRAZENECA-2007UW21617

PATIENT
  Age: 69 Year
  Sex: Female
  Weight: 55.3 kg

DRUGS (3)
  1. ATACAND [Suspect]
     Route: 048
     Dates: start: 20070828
  2. SYNTHROID [Concomitant]
  3. OCCULAR MEDICATION [Concomitant]

REACTIONS (4)
  - ABDOMINAL DISTENSION [None]
  - IRRITABILITY [None]
  - NAUSEA [None]
  - PAINFUL DEFAECATION [None]
